FAERS Safety Report 8037209-4 (Version None)
Quarter: 2012Q1

REPORT INFORMATION
  Report Type: 
  Country: None (occurrence: None)
  Receive Date: 20120109
  Receipt Date: 20111226
  Transmission Date: 20120608
  Serious: Yes (Disabling)
  Sender: FDA-Public Use
  Company Number: 1150228

PATIENT
  Age: 45 Year
  Sex: Male

DRUGS (1)
  1. SODIUM CHLORIDE [Suspect]
     Indication: HYPONATRAEMIA

REACTIONS (8)
  - DYSARTHRIA [None]
  - DYSPHONIA [None]
  - GAIT DISTURBANCE [None]
  - RAPID CORRECTION OF HYPONATRAEMIA [None]
  - OSMOTIC DEMYELINATION SYNDROME [None]
  - ASTHENIA [None]
  - DYSPHAGIA [None]
  - TREMOR [None]
